FAERS Safety Report 6833548-0 (Version None)
Quarter: 2010Q3

REPORT INFORMATION
  Report Type: 
  Country: None (occurrence: None)
  Receive Date: 20100712
  Receipt Date: 20070328
  Transmission Date: 20110219
  Serious: No
  Sender: FDA-Public Use
  Company Number: US-PFIZER INC-2007025261

PATIENT
  Sex: Female
  Weight: 89.81 kg

DRUGS (9)
  1. CHANTIX [Suspect]
     Indication: SMOKING CESSATION THERAPY
     Dates: start: 20070315
  2. LEXAPRO [Concomitant]
  3. ACIPHEX [Concomitant]
  4. PLENDIL [Concomitant]
  5. TRIAMTERENE [Concomitant]
  6. FELDENE [Concomitant]
  7. ADVAIR DISKUS 100/50 [Concomitant]
  8. ATROVENT [Concomitant]
  9. ALBUTEROL [Concomitant]

REACTIONS (4)
  - ABDOMINAL DISCOMFORT [None]
  - GASTRITIS [None]
  - INCREASED APPETITE [None]
  - NAUSEA [None]
